FAERS Safety Report 4662678-7 (Version None)
Quarter: 2005Q2

REPORT INFORMATION
  Report Type: 
  Country: None (occurrence: None)
  Receive Date: 20050516
  Receipt Date: 20050314
  Transmission Date: 20051028
  Serious: Yes (Other)
  Sender: FDA-Public Use
  Company Number: US-GLAXOSMITHKLINE-A0549619A

PATIENT
  Age: 32 Year
  Sex: Male
  Weight: 65.9 kg

DRUGS (2)
  1. PAXIL CR [Suspect]
     Indication: DEPRESSION
     Route: 048
     Dates: start: 20050201, end: 20050313
  2. VITAMINS [Concomitant]

REACTIONS (2)
  - ELECTROCARDIOGRAM PR SHORTENED [None]
  - GRAND MAL CONVULSION [None]
